FAERS Safety Report 7888828-7 (Version None)
Quarter: 2011Q4

REPORT INFORMATION
  Report Type: 
  Country: None (occurrence: None)
  Receive Date: 20111031
  Receipt Date: 20111020
  Transmission Date: 20120403
  Serious: Yes (Other)
  Sender: FDA-Public Use
  Company Number: DSA_47952_2011

PATIENT
  Age: 25 Year
  Sex: Male

DRUGS (9)
  1. ABILIFY [Concomitant]
  2. AMBIEN [Concomitant]
  3. ZOVIRAX [Suspect]
     Indication: HERPES ZOSTER
     Dosage: (800 MG, ONCE INTRAVENOUS (NOT OTHERWISE SPECIFIED), (800 MG 5X/DAY ORAL), (800 MG, ONCE ORAL)
     Route: 042
  4. ZOVIRAX [Suspect]
     Indication: HERPES ZOSTER
     Dosage: (800 MG, ONCE INTRAVENOUS (NOT OTHERWISE SPECIFIED), (800 MG 5X/DAY ORAL), (800 MG, ONCE ORAL)
     Route: 042
  5. ZOVIRAX [Suspect]
     Indication: HERPES ZOSTER
     Dosage: (800 MG, ONCE INTRAVENOUS (NOT OTHERWISE SPECIFIED), (800 MG 5X/DAY ORAL), (800 MG, ONCE ORAL)
     Route: 042
  6. PROPRANOLOL [Concomitant]
  7. VICODIN [Suspect]
     Indication: HERPES ZOSTER
     Dosage: (DF)
  8. TRILEPTAL [Concomitant]
  9. XANAX [Concomitant]

REACTIONS (10)
  - NEPHROPATHY [None]
  - VISION BLURRED [None]
  - RENAL FAILURE ACUTE [None]
  - BLOOD CREATININE INCREASED [None]
  - ERYTHEMA [None]
  - PRURITUS [None]
  - PAIN [None]
  - CORNEAL OEDEMA [None]
  - FLANK PAIN [None]
  - RASH VESICULAR [None]
